FAERS Safety Report 9620071 (Version 1)
Quarter: 2013Q4

REPORT INFORMATION
  Report Type: Report from Study
  Country: None (occurrence: US)
  Receive Date: 20131014
  Receipt Date: 20131014
  Transmission Date: 20140711
  Serious: Yes (Other)
  Sender: FDA-Public Use
  Company Number: US-EXELIXIS-XL18413003427

PATIENT
  Age: 45 Year
  Sex: Female

DRUGS (1)
  1. XL184 [Suspect]
     Dosage: 60 MG, QD
     Route: 048
     Dates: start: 20130507

REACTIONS (1)
  - Left ventricular dysfunction [Unknown]
